FAERS Safety Report 5228452-8 (Version None)
Quarter: 2007Q1

REPORT INFORMATION
  Report Type: 
  Country: None (occurrence: None)
  Receive Date: 20070131
  Receipt Date: 20070131
  Transmission Date: 20070707
  Serious: Yes (Death)
  Sender: FDA-Public Use
  Company Number: None

PATIENT
  Sex: Male
  Weight: 90.7194 kg

DRUGS (1)
  1. FORADIL [Suspect]
     Indication: CHRONIC OBSTRUCTIVE PULMONARY DISEASE
     Dosage: 12 MCG Q 12 H INH
     Route: 055
     Dates: start: 20051101, end: 20060201

REACTIONS (2)
  - NERVOUS SYSTEM DISORDER [None]
  - RESPIRATORY ARREST [None]
